FAERS Safety Report 7382102-3 (Version None)
Quarter: 2011Q1

REPORT INFORMATION
  Report Type: 
  Country: None (occurrence: None)
  Receive Date: 20110329
  Receipt Date: 20110316
  Transmission Date: 20110831
  Serious: Yes (Hospitalization, Other)
  Sender: FDA-Public Use
  Company Number: PHHO2011DK01998

PATIENT
  Sex: Male
  Weight: 84 kg

DRUGS (1)
  1. AFINITOR [Suspect]
     Indication: METASTATIC RENAL CELL CARCINOMA
     Dosage: 10 MG
     Route: 048
     Dates: start: 20101027

REACTIONS (9)
  - COUGH [None]
  - DYSPNOEA [None]
  - GAMMA-GLUTAMYLTRANSFERASE INCREASED [None]
  - VOCAL CORD PARALYSIS [None]
  - FATIGUE [None]
  - PYREXIA [None]
  - ORAL FUNGAL INFECTION [None]
  - PNEUMONIA [None]
  - C-REACTIVE PROTEIN INCREASED [None]
